FAERS Safety Report 19830106 (Version 1)
Quarter: 2021Q3

REPORT INFORMATION
  Report Type: Spontaneous
  Country: US (occurrence: US)
  Receive Date: 20210915
  Receipt Date: 20210915
  Transmission Date: 20211014
  Serious: Yes (Other)
  Sender: FDA-Public Use
  Company Number: US-SUN PHARMACEUTICAL INDUSTRIES LTD-2021R1-310972

PATIENT
  Age: 70 Year
  Sex: Male

DRUGS (1)
  1. SUNITINIB [Suspect]
     Active Substance: SUNITINIB
     Indication: GASTROINTESTINAL STROMAL TUMOUR
     Dosage: UNK
     Route: 065

REACTIONS (4)
  - Glomerulonephritis membranous [Unknown]
  - Hypertension [Recovered/Resolved]
  - Condition aggravated [Unknown]
  - Nephrotic syndrome [Unknown]
